FAERS Safety Report 23548411 (Version 5)
Quarter: 2024Q3

REPORT INFORMATION
  Report Type: Report from Study
  Country: US (occurrence: US)
  Receive Date: 20240221
  Receipt Date: 20240913
  Transmission Date: 20241016
  Serious: Yes (Hospitalization)
  Sender: ROCHE
  Company Number: US-ROCHE-3509098

PATIENT
  Age: 65 Year
  Sex: Female
  Weight: 164.2 kg

DRUGS (24)
  1. ACTEMRA [Suspect]
     Active Substance: TOCILIZUMAB
     Indication: Giant cell arteritis
     Route: 058
     Dates: start: 2019
  2. ACTEMRA [Suspect]
     Active Substance: TOCILIZUMAB
  3. VITAMIN C [Concomitant]
     Active Substance: ASCORBIC ACID
  4. WELLBUTRIN [Concomitant]
     Active Substance: BUPROPION HYDROCHLORIDE
  5. VITAMIN D [Concomitant]
     Active Substance: VITAMIN D NOS
  6. CALCIUM CARBONATE [Concomitant]
     Active Substance: CALCIUM CARBONATE
  7. VITAMIN B12 [Concomitant]
     Active Substance: CYANOCOBALAMIN
  8. CYMBALTA [Concomitant]
     Active Substance: DULOXETINE HYDROCHLORIDE
  9. LUNESTA [Concomitant]
     Active Substance: ESZOPICLONE
  10. LASIX [Concomitant]
     Active Substance: FUROSEMIDE
  11. GABAPENTIN [Concomitant]
     Active Substance: GABAPENTIN
  12. GLUCOPHAGE [Concomitant]
     Active Substance: METFORMIN HYDROCHLORIDE
  13. LOPRESSOR [Concomitant]
     Active Substance: METOPROLOL TARTRATE
  14. LOPRESSOR [Concomitant]
     Active Substance: METOPROLOL TARTRATE
  15. ROBAXIN [Concomitant]
     Active Substance: METHOCARBAMOL
  16. PERCOCET [Concomitant]
     Active Substance: ACETAMINOPHEN\OXYCODONE HYDROCHLORIDE
  17. OZEMPIC [Concomitant]
     Active Substance: SEMAGLUTIDE
  18. OZEMPIC [Concomitant]
     Active Substance: SEMAGLUTIDE
  19. potassiumchloride [Concomitant]
  20. potassiumchloride [Concomitant]
  21. MIRAPEX [Concomitant]
     Active Substance: PRAMIPEXOLE DIHYDROCHLORIDE
  22. MIRAPEX [Concomitant]
     Active Substance: PRAMIPEXOLE DIHYDROCHLORIDE
  23. REQUIP [Concomitant]
     Active Substance: ROPINIROLE HYDROCHLORIDE
  24. CRESTOR [Concomitant]
     Active Substance: ROSUVASTATIN CALCIUM

REACTIONS (8)
  - Bacteraemia [Unknown]
  - Gait disturbance [Unknown]
  - Cataract [Unknown]
  - Haemorrhage [Unknown]
  - Pneumonia [Unknown]
  - Cellulitis [Unknown]
  - Cat scratch disease [Unknown]
  - Immunosuppression [Unknown]
